FAERS Safety Report 4820035-4 (Version None)
Quarter: 2005Q4

REPORT INFORMATION
  Report Type: 
  Country: None (occurrence: None)
  Receive Date: 20051031
  Receipt Date: 20050823
  Transmission Date: 20060501
  Serious: No
  Sender: FDA-Public Use
  Company Number: WAES 0508USA04015

PATIENT
  Sex: Female

DRUGS (3)
  1. EMEND [Suspect]
     Dosage: PO
     Route: 048
  2. PACLITAXEL [Suspect]
  3. NEULASTA [Suspect]

REACTIONS (2)
  - ARTHRALGIA [None]
  - INTENTIONAL DRUG MISUSE [None]
